FAERS Safety Report 20695656 (Version 2)
Quarter: 2022Q2

REPORT INFORMATION
  Report Type: Spontaneous
  Country: US (occurrence: None)
  Receive Date: 20220411
  Receipt Date: 20220525
  Transmission Date: 20220721
  Serious: No
  Sender: FDA-Public Use
  Company Number: 2022A132602

PATIENT
  Sex: Female

DRUGS (2)
  1. BUDESONIDE\FORMOTEROL [Suspect]
     Active Substance: BUDESONIDE\FORMOTEROL
     Indication: Bronchitis chronic
     Dosage: 160/4.5 MCG 120 INHALATIONS INHALER.
     Route: 055
     Dates: start: 20211229
  2. SYMBICORT [Suspect]
     Active Substance: BUDESONIDE\FORMOTEROL FUMARATE DIHYDRATE
     Indication: Bronchitis chronic
     Route: 055

REACTIONS (10)
  - Visual impairment [Not Recovered/Not Resolved]
  - Inflammation [Recovering/Resolving]
  - Obstructive airways disorder [Recovering/Resolving]
  - Lung disorder [Recovering/Resolving]
  - Cough [Unknown]
  - Product use issue [Not Recovered/Not Resolved]
  - Wrong technique in device usage process [Recovered/Resolved]
  - Inability to afford medication [Unknown]
  - Intentional dose omission [Unknown]
  - Device malfunction [Unknown]
